FAERS Safety Report 9368882 (Version 1)
Quarter: 2013Q2

REPORT INFORMATION
  Report Type: Spontaneous
  Country: IT (occurrence: None)
  Receive Date: 20130621
  Receipt Date: 20130621
  Transmission Date: 20140414
  Serious: No
  Sender: FDA-Public Use
  Company Number: 2013AP003218

PATIENT
  Age: 42 Year
  Sex: Female

DRUGS (6)
  1. FERRIPROX [Suspect]
     Indication: IRON OVERLOAD
     Route: 048
     Dates: start: 20121114, end: 20121224
  2. CALCITRIOL [Concomitant]
  3. LOETTE [Concomitant]
  4. LANTUS [Concomitant]
  5. EXJADE [Concomitant]
  6. EUTIROX [Concomitant]

REACTIONS (1)
  - Agranulocytosis [None]
